FAERS Safety Report 6086119-0 (Version None)
Quarter: 2009Q1

REPORT INFORMATION
  Report Type: 
  Country: None (occurrence: None)
  Receive Date: 20090217
  Receipt Date: 20090217
  Transmission Date: 20090719
  Serious: Yes (Death)
  Sender: FDA-Public Use
  Company Number: None

PATIENT
  Age: 52 Year
  Sex: Male
  Weight: 99.7913 kg

DRUGS (1)
  1. CIPRO [Suspect]
     Indication: POLLAKIURIA
     Dosage: 500 MG 2 A DAY PO
     Route: 048
     Dates: start: 20060519, end: 20060719

REACTIONS (1)
  - COMPLETED SUICIDE [None]
